FAERS Safety Report 23696260 (Version 1)
Quarter: 2024Q2

REPORT INFORMATION
  Report Type: Spontaneous
  Country: US (occurrence: US)
  Receive Date: 20240402
  Receipt Date: 20240402
  Transmission Date: 20240716
  Serious: No
  Sender: FDA-Public Use
  Company Number: US-ALKEM LABORATORIES LIMITED-US-ALKEM-2023-12545

PATIENT
  Age: 74 Year
  Sex: Male

DRUGS (15)
  1. QUETIAPINE FUMARATE [Suspect]
     Active Substance: QUETIAPINE FUMARATE
     Indication: Nightmare
     Dosage: 50 MILLIGRAM
     Route: 065
  2. QUETIAPINE FUMARATE [Suspect]
     Active Substance: QUETIAPINE FUMARATE
     Indication: Rapid eye movement sleep behaviour disorder
     Dosage: 12.5 MILLIGRAM, HS (AT BED TIME)
     Route: 065
  3. CLONAZEPAM [Concomitant]
     Active Substance: CLONAZEPAM
     Indication: Rapid eye movement sleep behaviour disorder
     Dosage: 0.5 MILLIGRAM
     Route: 065
  4. MELATONIN [Concomitant]
     Active Substance: MELATONIN
     Indication: Depressive symptom
     Dosage: 3 MILLIGRAM
     Route: 065
  5. MELATONIN [Concomitant]
     Active Substance: MELATONIN
     Indication: Nightmare
  6. MELATONIN [Concomitant]
     Active Substance: MELATONIN
     Indication: Night sweats
  7. PRAZOSIN [Concomitant]
     Active Substance: PRAZOSIN
     Indication: Nightmare
     Dosage: 1 MILLIGRAM, HS
     Route: 065
  8. PRAZOSIN [Concomitant]
     Active Substance: PRAZOSIN
     Indication: Post-traumatic stress disorder
  9. RISPERIDONE [Concomitant]
     Active Substance: RISPERIDONE
     Indication: Post-traumatic stress disorder
     Dosage: 0.25 MILLIGRAM, HS (BED TIME)
     Route: 065
  10. RISPERIDONE [Concomitant]
     Active Substance: RISPERIDONE
     Indication: Nightmare
  11. SERTRALINE [Concomitant]
     Active Substance: SERTRALINE HYDROCHLORIDE
     Indication: Depressive symptom
     Dosage: 25 MILLIGRAM (IN THE MORNING)
     Route: 065
  12. SERTRALINE [Concomitant]
     Active Substance: SERTRALINE HYDROCHLORIDE
     Indication: Nightmare
     Dosage: 50 MILLIGRAM (INCREASED)
     Route: 065
  13. SERTRALINE [Concomitant]
     Active Substance: SERTRALINE HYDROCHLORIDE
     Indication: Night sweats
  14. TEMAZEPAM [Concomitant]
     Active Substance: TEMAZEPAM
     Indication: Post-traumatic stress disorder
     Dosage: 7.5 MILLIGRAM, HS
     Route: 065
  15. TEMAZEPAM [Concomitant]
     Active Substance: TEMAZEPAM
     Indication: Nightmare

REACTIONS (5)
  - Loss of personal independence in daily activities [Recovering/Resolving]
  - Paradoxical drug reaction [Recovering/Resolving]
  - Screaming [Recovering/Resolving]
  - Sedation complication [Recovering/Resolving]
  - Drug ineffective [Unknown]
